FAERS Safety Report 8458857-3 (Version None)
Quarter: 2012Q2

REPORT INFORMATION
  Report Type: 
  Country: None (occurrence: None)
  Receive Date: 20120622
  Receipt Date: 20120611
  Transmission Date: 20120825
  Serious: Yes (Other)
  Sender: FDA-Public Use
  Company Number: GB-ELI_LILLY_AND_COMPANY-GB201206003590

PATIENT
  Age: 45 Year
  Sex: Female
  Weight: 106 kg

DRUGS (20)
  1. INSULIN [Concomitant]
  2. SODIUM CROMOGLICATE [Concomitant]
     Dosage: 1 DF, QID
  3. ATORVASTATIN CALCIUM [Concomitant]
     Indication: HYPERCHOLESTEROLAEMIA
     Dosage: 40 MG, QD
  4. MOMETASONA FUROATO [Concomitant]
     Dosage: 50 UG, QD
  5. VICTOZA [Concomitant]
     Dosage: 18 MG, UNK
  6. DULOXETINE HYDROCHLORIDE [Suspect]
     Dosage: 20 MG, UNK
     Route: 048
     Dates: start: 20120524, end: 20120525
  7. AMITRIPTYLINE HCL [Concomitant]
     Dosage: 10 MG, TID
  8. DIXARIT [Concomitant]
     Indication: HOT FLUSH
     Dosage: 50 UG, QD
  9. LEVOTHYROXINE [Concomitant]
     Dosage: 100 UG, QD
  10. SERTRALINE HYDROCHLORIDE [Concomitant]
     Dosage: 50 MG, QD
  11. METOCLOPRAMIDE [Concomitant]
     Dosage: 10 MG, TID
  12. MS CONTIN [Concomitant]
     Dosage: 10 MG, OTHER
  13. ACETAMINOPHEN [Concomitant]
     Dosage: 1000 MG, QID
  14. AMLODIPINE [Concomitant]
     Dosage: 5 MG, QD
  15. RAMIPRIL [Concomitant]
     Dosage: 10 MG, QD
  16. DULOXETINE HYDROCHLORIDE [Suspect]
     Indication: DEPRESSION
     Dosage: UNK
  17. LANTUS [Concomitant]
  18. METFORMIN HCL [Concomitant]
     Dosage: 1000 MG, QD
  19. OMEPRAZOLE [Concomitant]
     Indication: DYSPEPSIA
     Dosage: 20 MG, QD
  20. WARFARIN SODIUM [Concomitant]
     Dosage: 1 MG, UNK

REACTIONS (2)
  - HYPOGLYCAEMIA [None]
  - URINE ANALYSIS ABNORMAL [None]
